FAERS Safety Report 12082840 (Version 3)
Quarter: 2023Q2

REPORT INFORMATION
  Report Type: Report from Study
  Country: IN (occurrence: IN)
  Receive Date: 20160217
  Receipt Date: 20230517
  Transmission Date: 20230722
  Serious: Yes (Death, Other)
  Sender: FDA-Public Use
  Company Number: PHHY2016IN020110

PATIENT
  Sex: Male

DRUGS (2)
  1. GLIVEC [Suspect]
     Active Substance: IMATINIB MESYLATE
     Indication: Chronic myeloid leukaemia
     Dosage: 400 MG
     Route: 065
  2. GLIVEC [Suspect]
     Active Substance: IMATINIB MESYLATE
     Dosage: 600 MG (1 X 400MG + 2 X 100MG)
     Route: 065

REACTIONS (3)
  - Shock [Fatal]
  - Thermal burn [Fatal]
  - Tuberculosis [Unknown]
